FAERS Safety Report 9710478 (Version 1)
Quarter: 2013Q4

REPORT INFORMATION
  Report Type: Spontaneous
  Country: US (occurrence: US)
  Receive Date: 20131126
  Receipt Date: 20131126
  Transmission Date: 20140711
  Serious: No
  Sender: FDA-Public Use
  Company Number: US-BRISTOL-MYERS SQUIBB COMPANY-19439538

PATIENT
  Age: 59 Year
  Sex: Female
  Weight: 108.84 kg

DRUGS (9)
  1. BYDUREON [Suspect]
     Dates: start: 20130525
  2. METFORMIN HCL [Suspect]
  3. BUMETANIDE [Concomitant]
  4. RAMIPRIL [Concomitant]
  5. VENLAFAXINE HCL [Concomitant]
  6. IMDUR [Concomitant]
  7. ATORVASTATIN [Concomitant]
  8. COREG [Concomitant]
  9. ASPIRIN [Concomitant]

REACTIONS (2)
  - Blood glucose increased [Not Recovered/Not Resolved]
  - Drug dose omission [Unknown]
